FAERS Safety Report 9187805 (Version 2)
Quarter: 2013Q2

REPORT INFORMATION
  Report Type: Report from Study
  Country: DE (occurrence: DE)
  Receive Date: 20130325
  Receipt Date: 20130401
  Transmission Date: 20140414
  Serious: Yes (Death, Hospitalization)
  Sender: FDA-Public Use
  Company Number: DE-ROCHE-1205340

PATIENT
  Sex: Male
  Weight: 84.6 kg

DRUGS (2)
  1. RITUXIMAB [Suspect]
     Indication: CHRONIC LYMPHOCYTIC LEUKAEMIA
     Route: 065
     Dates: start: 20130318, end: 20130318
  2. BENDAMUSTINE [Concomitant]
     Indication: CHRONIC LYMPHOCYTIC LEUKAEMIA
     Route: 065
     Dates: start: 20130319, end: 20130319

REACTIONS (3)
  - Septic shock [Fatal]
  - Renal failure [Fatal]
  - Pneumonia [Fatal]
